FAERS Safety Report 10174947 (Version 1)
Quarter: 2014Q2

REPORT INFORMATION
  Report Type: Spontaneous
  Country: CA (occurrence: CA)
  Receive Date: 20140515
  Receipt Date: 20140515
  Transmission Date: 20141212
  Serious: Yes (Hospitalization, Disabling)
  Sender: FDA-Public Use
  Company Number: CA-B.I. PHARMACEUTICALS,INC./RIDGEFIELD-2014-BI-20567CN

PATIENT
  Age: 50 Year
  Sex: Male
  Weight: 74 kg

DRUGS (5)
  1. TRAJENTA [Suspect]
     Indication: PRODUCT USED FOR UNKNOWN INDICATION
     Dosage: 5 MG
     Route: 065
  2. DICLOFENAC [Concomitant]
     Route: 065
  3. GLICLAZIDE MR [Concomitant]
     Route: 065
  4. METFORMIN [Concomitant]
     Route: 065
  5. PERINDOPRIL [Concomitant]
     Route: 065

REACTIONS (6)
  - Abdominal pain [Recovered/Resolved]
  - Bowel movement irregularity [Recovered/Resolved]
  - Lipase increased [Recovered/Resolved]
  - Pancreatitis [Recovered/Resolved]
  - Retinal artery occlusion [Recovered/Resolved]
  - Vomiting [Recovered/Resolved]
